FAERS Safety Report 22244245 (Version 2)
Quarter: 2025Q4

REPORT INFORMATION
  Report Type: Spontaneous
  Country: EU (occurrence: EU)
  Receive Date: 20230424
  Receipt Date: 20251003
  Transmission Date: 20260118
  Serious: Yes (Other)
  Sender: AUROBINDO
  Company Number: EU-FreseniusKabi-FK202304469

PATIENT
  Age: 76 Year
  Sex: Male

DRUGS (1)
  1. VORICONAZOLE [Suspect]
     Active Substance: VORICONAZOLE
     Indication: Antifungal treatment
     Dosage: UNK (VORCONAZOLE WAS SUSPENDED, MAINTAINING WEEKLY DOSING)
     Route: 065

REACTIONS (3)
  - Disorientation [Not Recovered/Not Resolved]
  - Hallucination, visual [Not Recovered/Not Resolved]
  - Agitation [Not Recovered/Not Resolved]
